FAERS Safety Report 8159359-4 (Version None)
Quarter: 2012Q1

REPORT INFORMATION
  Report Type: 
  Country: None (occurrence: None)
  Receive Date: 20120217
  Receipt Date: 20120207
  Transmission Date: 20120608
  Serious: Yes (Hospitalization)
  Sender: FDA-Public Use
  Company Number: ADR-2011-10452

PATIENT
  Age: 45 Year
  Sex: Male

DRUGS (1)
  1. BACLOFEN [Suspect]
     Indication: MUSCLE SPASTICITY
     Dosage: MCG, DAILY, INTRATH
     Route: 037

REACTIONS (4)
  - PERONEAL NERVE PALSY [None]
  - PSEUDOMEMBRANOUS COLITIS [None]
  - CELLULITIS [None]
  - COMPARTMENT SYNDROME [None]
